FAERS Safety Report 5471042-2 (Version None)
Quarter: 2007Q3

REPORT INFORMATION
  Report Type: 
  Country: None (occurrence: None)
  Receive Date: 20070928
  Receipt Date: 20070924
  Transmission Date: 20080115
  Serious: Yes (Other)
  Sender: FDA-Public Use
  Company Number: B0489096A

PATIENT
  Sex: Female

DRUGS (1)
  1. TIMENTIN [Suspect]
     Route: 065
     Dates: start: 20070919

REACTIONS (1)
  - URINARY INCONTINENCE [None]
